FAERS Safety Report 8029931-0 (Version None)
Quarter: 2011Q4

REPORT INFORMATION
  Report Type: 
  Country: None (occurrence: None)
  Receive Date: 20111130
  Receipt Date: 20110523
  Transmission Date: 20120403
  Serious: Yes (Other)
  Sender: FDA-Public Use
  Company Number: US201105006745

PATIENT
  Age: 66 Year
  Sex: Female
  Weight: 77.1 kg

DRUGS (14)
  1. ALPRAZOLAM [Concomitant]
  2. LISINOPRIL [Concomitant]
  3. CRANBERRY (VACCINIUM MACROCARPON) [Concomitant]
  4. LOVASTATIN [Concomitant]
  5. BYETTA [Suspect]
     Indication: TYPE 2 DIABETES MELLITUS
     Dosage: 5 UG, BID, SUBCUTANEOUS ; 10 UG, BID, SUBCUTANEOUS ; 5 UG, BID, SUBCUTANEOUS
     Route: 058
     Dates: start: 20110501
  6. BYETTA [Suspect]
     Indication: TYPE 2 DIABETES MELLITUS
     Dosage: 5 UG, BID, SUBCUTANEOUS ; 10 UG, BID, SUBCUTANEOUS ; 5 UG, BID, SUBCUTANEOUS
     Route: 058
     Dates: start: 20061220
  7. BYETTA [Suspect]
     Indication: TYPE 2 DIABETES MELLITUS
     Dosage: 5 UG, BID, SUBCUTANEOUS ; 10 UG, BID, SUBCUTANEOUS ; 5 UG, BID, SUBCUTANEOUS
     Route: 058
     Dates: end: 20090901
  8. TRILIPIX (CHOLINE FENOFBIRATE) [Concomitant]
  9. DICYCLOMINE [Concomitant]
  10. EXCEDRIN (MIGRAINE) [Concomitant]
  11. VITAMIN D [Concomitant]
  12. LIPITOR [Concomitant]
  13. FENOFIBRATE [Concomitant]
  14. OMEPRAZOLE [Concomitant]

REACTIONS (5)
  - PANCREATITIS [None]
  - WEIGHT INCREASED [None]
  - GLYCOSYLATED HAEMOGLOBIN INCREASED [None]
  - BLOOD TRIGLYCERIDES ABNORMAL [None]
  - BLOOD GLUCOSE INCREASED [None]
